FAERS Safety Report 8240230-4 (Version None)
Quarter: 2012Q1

REPORT INFORMATION
  Report Type: 
  Country: None (occurrence: None)
  Receive Date: 20120328
  Receipt Date: 20120320
  Transmission Date: 20120608
  Serious: Yes (Other)
  Sender: FDA-Public Use
  Company Number: US-ELI_LILLY_AND_COMPANY-US201110006101

PATIENT
  Sex: Female
  Weight: 63.492 kg

DRUGS (2)
  1. FORTEO [Suspect]
     Indication: OSTEOPOROSIS
     Dosage: 20 UG, QD
     Route: 058
     Dates: start: 20110401, end: 20110928
  2. MULTI-VITAMIN [Concomitant]
     Dosage: UNK, QD

REACTIONS (2)
  - BLOOD DISORDER [None]
  - MULTIPLE MYELOMA [None]
